FAERS Safety Report 8533731 (Version 2)
Quarter: 2014Q2

REPORT INFORMATION
  Report Type: Spontaneous
  Country: CN (occurrence: CN)
  Receive Date: 20120427
  Receipt Date: 20140602
  Transmission Date: 20141212
  Serious: Yes (Hospitalization, Other)
  Sender: FDA-Public Use
  Company Number: CN-JNJFOC-20120408792

PATIENT
  Age: 50 Year
  Sex: Female

DRUGS (1)
  1. SPORANOX [Suspect]
     Indication: ONYCHOMYCOSIS
     Route: 048
     Dates: start: 20120103, end: 20120318

REACTIONS (10)
  - Palpitations [Recovered/Resolved]
  - Musculoskeletal chest pain [Recovered/Resolved]
  - Renal pain [Recovered/Resolved]
  - Chest pain [Recovered/Resolved]
  - Investigation [Unknown]
  - Abdominal distension [Recovered/Resolved]
  - Decreased appetite [Recovered/Resolved]
  - Intentional product misuse [Recovered/Resolved]
  - Chest discomfort [Unknown]
  - Dyspnoea [Unknown]
